FAERS Safety Report 6753184-4 (Version None)
Quarter: 2010Q2

REPORT INFORMATION
  Report Type: 
  Country: None (occurrence: None)
  Receive Date: 20100603
  Receipt Date: 20100205
  Transmission Date: 20101027
  Serious: No
  Sender: FDA-Public Use
  Company Number: US-KINGPHARMUSA00001-K201000143

PATIENT
  Age: 77 Year
  Sex: Male

DRUGS (3)
  1. CORTISPORIN [Suspect]
     Indication: RHINITIS
     Dosage: UNK
     Route: 061
     Dates: start: 20090101
  2. DIURETICS [Concomitant]
     Indication: CARDIAC FAILURE CONGESTIVE
     Dosage: 2 DF, UNK
  3. COUMADIN [Concomitant]
     Indication: CARDIAC FIBRILLATION
     Dosage: UNK

REACTIONS (2)
  - DRUG EFFECT DECREASED [None]
  - PRURITUS [None]
